FAERS Safety Report 16931091 (Version 1)
Quarter: 2019Q4

REPORT INFORMATION
  Report Type: Spontaneous
  Country: US (occurrence: US)
  Receive Date: 20191017
  Receipt Date: 20191017
  Transmission Date: 20200122
  Serious: Yes (Other)
  Sender: FDA-Public Use
  Company Number: US-BAYER-2019-184686

PATIENT
  Age: 21 Year
  Sex: Male

DRUGS (3)
  1. CYTARABINE. [Suspect]
     Active Substance: CYTARABINE
  2. SORAFENIB (RAF KINASE INHIBITOR) [Suspect]
     Active Substance: SORAFENIB
     Indication: ACUTE MYELOID LEUKAEMIA
  3. CLOFARABINE. [Suspect]
     Active Substance: CLOFARABINE

REACTIONS (9)
  - Pain in extremity [Recovered/Resolved]
  - Gait inability [Recovered/Resolved]
  - Blister [None]
  - Palmar-plantar erythrodysaesthesia syndrome [Recovered/Resolved]
  - Peripheral swelling [Recovered/Resolved]
  - Product use in unapproved indication [None]
  - Off label use [None]
  - Erythema [Recovered/Resolved]
  - Skin exfoliation [None]
